FAERS Safety Report 12688197 (Version 2)
Quarter: 2016Q3

REPORT INFORMATION
  Report Type: Spontaneous
  Country: FR (occurrence: FR)
  Receive Date: 20160826
  Receipt Date: 20160829
  Transmission Date: 20161109
  Serious: Yes (Congenital Anomaly)
  Sender: FDA-Public Use
  Company Number: FR-JNJFOC-20160819637

PATIENT

DRUGS (7)
  1. CETIRIZINE HYDROCHLORIDE. [Suspect]
     Active Substance: CETIRIZINE HYDROCHLORIDE
     Route: 064
  2. CETIRIZINE HYDROCHLORIDE. [Suspect]
     Active Substance: CETIRIZINE HYDROCHLORIDE
     Indication: PRODUCT USED FOR UNKNOWN INDICATION
     Route: 064
  3. OXOMEMAZINE [Suspect]
     Active Substance: OXOMEMAZINE
     Indication: PRODUCT USED FOR UNKNOWN INDICATION
     Route: 064
  4. DOMPERIDONE [Suspect]
     Active Substance: DOMPERIDONE
     Indication: PRODUCT USED FOR UNKNOWN INDICATION
     Route: 064
  5. METOPIMAZINE [Suspect]
     Active Substance: METOPIMAZINE
     Indication: PRODUCT USED FOR UNKNOWN INDICATION
     Route: 064
  6. CHLORPROMAZINE. [Suspect]
     Active Substance: CHLORPROMAZINE
     Indication: PRODUCT USED FOR UNKNOWN INDICATION
     Route: 064
  7. RANITIDINE. [Suspect]
     Active Substance: RANITIDINE
     Indication: PRODUCT USED FOR UNKNOWN INDICATION
     Route: 064

REACTIONS (6)
  - Apgar score low [Unknown]
  - Foetal exposure during pregnancy [Unknown]
  - Congenital anomaly [Unknown]
  - Premature baby [Unknown]
  - Adverse event [Unknown]
  - Psychomotor skills impaired [Unknown]
